FAERS Safety Report 9637026 (Version 1)
Quarter: 2013Q4

REPORT INFORMATION
  Report Type: Spontaneous
  Country: US (occurrence: None)
  Receive Date: 20131011
  Receipt Date: 20131011
  Transmission Date: 20140711
  Serious: No
  Sender: FDA-Public Use
  Company Number: SP06938

PATIENT
  Age: 57 Year
  Sex: Male

DRUGS (1)
  1. FULYZAQ (DELAYED-RELEASE TABLETS) [Suspect]
     Indication: DIARRHOEA
     Dosage: 250 MG (125 MG, 2 IN 1 D), ORAL
     Route: 048

REACTIONS (3)
  - Drug ineffective [None]
  - Mucous stools [None]
  - Condition aggravated [None]
